FAERS Safety Report 8580418-6 (Version None)
Quarter: 2012Q3

REPORT INFORMATION
  Report Type: 
  Country: None (occurrence: None)
  Receive Date: 20120808
  Receipt Date: 20120803
  Transmission Date: 20120928
  Serious: Yes (Other)
  Sender: FDA-Public Use
  Company Number: US-PFIZER INC-2012189446

PATIENT
  Age: 88 Year
  Sex: Female

DRUGS (1)
  1. LATANOPROST [Suspect]
     Dosage: UNK

REACTIONS (2)
  - EYE SWELLING [None]
  - HEADACHE [None]
